FAERS Safety Report 12683686 (Version 1)
Quarter: 2016Q3

REPORT INFORMATION
  Report Type: Spontaneous
  Country: US (occurrence: US)
  Receive Date: 20160825
  Receipt Date: 20160825
  Transmission Date: 20161109
  Serious: No
  Sender: FDA-Public Use
  Company Number: US-ASTRAZENECA-2016SE87877

PATIENT
  Age: 28508 Day
  Sex: Female
  Weight: 54.4 kg

DRUGS (1)
  1. SYMBICORT [Suspect]
     Active Substance: BUDESONIDE\FORMOTEROL FUMARATE DIHYDRATE
     Indication: CHRONIC OBSTRUCTIVE PULMONARY DISEASE
     Dosage: USED EMPTY SYMBICORT 160/4.5 INHALER IN PLACE OF SYMBICORT 80/4.5 INHALER
     Route: 055

REACTIONS (5)
  - Cough [Unknown]
  - Product quality issue [Unknown]
  - Intentional product misuse [Unknown]
  - Intentional device misuse [Unknown]
  - Drug dose omission [Unknown]

NARRATIVE: CASE EVENT DATE: 20160810
